FAERS Safety Report 25075319 (Version 1)
Quarter: 2025Q1

REPORT INFORMATION
  Report Type: Spontaneous
  Country: RU (occurrence: RU)
  Receive Date: 20250313
  Receipt Date: 20250313
  Transmission Date: 20250409
  Serious: Yes (Death, Other)
  Sender: BRACCO
  Company Number: RU-BRACCO-2025RU01313

PATIENT
  Age: 40 Year
  Sex: Male

DRUGS (3)
  1. IOMERON [Suspect]
     Active Substance: IOMEPROL
     Indication: Diagnostic procedure
     Route: 041
     Dates: start: 20250227, end: 20250227
  2. IOHEXOL [Concomitant]
     Active Substance: IOHEXOL
     Route: 054
     Dates: start: 20250227, end: 20250227
  3. IOHEXOL [Concomitant]
     Active Substance: IOHEXOL
     Indication: Testis cancer
     Route: 048
     Dates: start: 20250227, end: 20250227

REACTIONS (1)
  - Anaphylactic shock [Fatal]

NARRATIVE: CASE EVENT DATE: 20250227
